FAERS Safety Report 6146392-7 (Version None)
Quarter: 2009Q2

REPORT INFORMATION
  Report Type: 
  Country: None (occurrence: None)
  Receive Date: 20090403
  Receipt Date: 20090403
  Transmission Date: 20091009
  Serious: Yes (Other)
  Sender: FDA-Public Use
  Company Number: None

PATIENT
  Age: 56 Year
  Sex: Female
  Weight: 64.4108 kg

DRUGS (1)
  1. PROPOFOL [Suspect]
     Indication: ANAESTHESIA
     Dosage: ONCE IV
     Route: 042
     Dates: start: 20081229

REACTIONS (4)
  - APHASIA [None]
  - DYSPNOEA [None]
  - IMMOBILE [None]
  - MUSCLE SPASMS [None]
